FAERS Safety Report 16876729 (Version 3)
Quarter: 2019Q4

REPORT INFORMATION
  Report Type: Spontaneous
  Country: FR (occurrence: FR)
  Receive Date: 20191002
  Receipt Date: 20191122
  Transmission Date: 20200122
  Serious: Yes (Hospitalization)
  Sender: FDA-Public Use
  Company Number: FR-ROCHE-2371958

PATIENT
  Age: 47 Year
  Sex: Female
  Weight: 60 kg

DRUGS (2)
  1. HEMLIBRA [Suspect]
     Active Substance: EMICIZUMAB-KXWH
     Indication: VON WILLEBRAND^S DISEASE
     Dosage: 150 MG/ML?180 MG / WEEK THEN 90 / WEEK
     Route: 058
     Dates: start: 20190829
  2. HEMLIBRA [Suspect]
     Active Substance: EMICIZUMAB-KXWH
     Indication: VON WILLEBRAND^S FACTOR ANTIBODY POSITIVE
     Dosage: 150 MG/ML
     Route: 058
     Dates: start: 20190926

REACTIONS (5)
  - Gastrointestinal angiodysplasia [Recovering/Resolving]
  - Gastrointestinal haemorrhage [Not Recovered/Not Resolved]
  - Melaena [Not Recovered/Not Resolved]
  - Intentional product use issue [Unknown]
  - Off label use [Unknown]

NARRATIVE: CASE EVENT DATE: 201909
